FAERS Safety Report 12990312 (Version 16)
Quarter: 2021Q3

REPORT INFORMATION
  Report Type: Spontaneous
  Country: US (occurrence: US)
  Receive Date: 20161201
  Receipt Date: 20210802
  Transmission Date: 20211014
  Serious: Yes (Other)
  Sender: FDA-Public Use
  Company Number: US-PFIZER INC-2016557187

PATIENT
  Age: 66 Year
  Sex: Female

DRUGS (12)
  1. TEMAZEPAM. [Concomitant]
     Active Substance: TEMAZEPAM
     Dosage: UNK
  2. LYRICA [Suspect]
     Active Substance: PREGABALIN
     Indication: ARTHRITIS
     Dosage: 75 MG, 3X/DAY
     Route: 048
  3. LYRICA [Suspect]
     Active Substance: PREGABALIN
     Indication: METASTASES TO BONE
     Dosage: 50 MG
     Route: 048
  4. VITAMIN D [Concomitant]
     Active Substance: VITAMIN D NOS
     Dosage: UNK
  5. DICLOFENAC SODIUM. [Concomitant]
     Active Substance: DICLOFENAC SODIUM
     Dosage: 75 MG
     Dates: start: 2016
  6. LYRICA [Suspect]
     Active Substance: PREGABALIN
     Indication: MYALGIA
     Dosage: 100 MG, 3X/DAY
     Route: 048
  7. LYRICA [Suspect]
     Active Substance: PREGABALIN
     Dosage: 75 MG, 3X/DAY
     Route: 048
  8. LYRICA [Suspect]
     Active Substance: PREGABALIN
     Dosage: 75 MG, 2X/DAY
  9. BUTRANS [Concomitant]
     Active Substance: BUPRENORPHINE
     Dosage: UNK
  10. PERCOCET [Concomitant]
     Active Substance: ACETAMINOPHEN\OXYCODONE HYDROCHLORIDE
     Dosage: 10/325 MG EVERY FOUR HOURS EVEN THROUGH THE NIGHT
  11. LYRICA [Suspect]
     Active Substance: PREGABALIN
     Indication: BREAST CANCER METASTATIC
     Dosage: 150 MG, 3X/DAY
     Route: 048
  12. CALCIUM [Concomitant]
     Active Substance: CALCIUM
     Dosage: UNK

REACTIONS (21)
  - Illness [Unknown]
  - Muscle spasms [Unknown]
  - Radiculopathy [Unknown]
  - Abdominal pain upper [Recovered/Resolved]
  - Somnolence [Recovered/Resolved]
  - Pain in extremity [Unknown]
  - Withdrawal syndrome [Recovered/Resolved]
  - Pruritus [Unknown]
  - Pain [Unknown]
  - Joint swelling [Unknown]
  - Constipation [Unknown]
  - Insomnia [Unknown]
  - Retinal infarction [Unknown]
  - Sensation of foreign body [Unknown]
  - Off label use [Unknown]
  - Glaucoma [Unknown]
  - Musculoskeletal stiffness [Unknown]
  - Burning sensation [Unknown]
  - Asthenia [Recovered/Resolved]
  - Arthralgia [Unknown]
  - Joint stiffness [Unknown]

NARRATIVE: CASE EVENT DATE: 201611
